FAERS Safety Report 20975843 (Version 1)
Quarter: 2022Q2

REPORT INFORMATION
  Report Type: Spontaneous
  Country: US (occurrence: None)
  Receive Date: 20220617
  Receipt Date: 20220617
  Transmission Date: 20220721
  Serious: No
  Sender: FDA-Public Use
  Company Number: None

PATIENT
  Age: 50 Year
  Sex: Male

DRUGS (1)
  1. EVEROLIMUS [Suspect]
     Active Substance: EVEROLIMUS
     Dosage: 0.75MG TAB; 5 TABLETS BID ORAL?
     Route: 048
     Dates: start: 2020

REACTIONS (5)
  - Thrombosis [None]
  - Pulmonary embolism [None]
  - Hepatic enzyme increased [None]
  - Platelet count decreased [None]
  - Blood urine present [None]

NARRATIVE: CASE EVENT DATE: 20220610
